FAERS Safety Report 6595969-3 (Version None)
Quarter: 2010Q1

REPORT INFORMATION
  Report Type: 
  Country: None (occurrence: None)
  Receive Date: 20100219
  Receipt Date: 20100219
  Transmission Date: 20100710
  Serious: No
  Sender: FDA-Public Use
  Company Number: None

PATIENT
  Sex: Male

DRUGS (12)
  1. FORTEO [Suspect]
     Dosage: 600 MCG/2.4ML PEN
     Route: 058
     Dates: start: 20100215
  2. ASPIRIN ADLT [Concomitant]
  3. SINGULAIR [Concomitant]
  4. UROXATRAL [Concomitant]
  5. ASTELIN NASA SPR [Concomitant]
  6. RAMIPRIL [Concomitant]
  7. LIPITOR [Concomitant]
  8. OMEPRAZOLE [Concomitant]
  9. OMERPRAZOLE [Concomitant]
  10. SYMPICORT [Concomitant]
  11. FISH OIL [Concomitant]
  12. VITAMIN D [Concomitant]

REACTIONS (4)
  - ARTHRALGIA [None]
  - CONNECTIVE TISSUE DISORDER [None]
  - MUSCULOSKELETAL DISORDER [None]
  - PAIN IN EXTREMITY [None]
